FAERS Safety Report 7674194-9 (Version None)
Quarter: 2011Q3

REPORT INFORMATION
  Report Type: 
  Country: None (occurrence: None)
  Receive Date: 20110810
  Receipt Date: 20110803
  Transmission Date: 20111222
  Serious: Yes (Hospitalization)
  Sender: FDA-Public Use
  Company Number: FR-SANOFI-AVENTIS-2011SA049522

PATIENT
  Age: 1 Day
  Sex: Male
  Weight: 3.08 kg

DRUGS (7)
  1. IMURAN [Suspect]
     Indication: CROHN'S DISEASE
     Route: 064
     Dates: end: 20110628
  2. OMEPRAZOLE [Suspect]
     Route: 064
     Dates: end: 20110628
  3. XANAX [Concomitant]
     Dosage: DOSE:1 UNIT(S)
     Route: 064
  4. PREDNISOLONE [Suspect]
     Indication: CROHN'S DISEASE
     Route: 064
     Dates: end: 20110628
  5. CYMBALTA [Suspect]
     Indication: CROHN'S DISEASE
     Route: 064
     Dates: end: 20110628
  6. ZOLPIDEM [Suspect]
  7. MORPHINE SULFATE [Suspect]
     Route: 064
     Dates: end: 20110628

REACTIONS (3)
  - RESPIRATORY DISTRESS [None]
  - HYPOGLYCAEMIA [None]
  - FEEDING DISORDER NEONATAL [None]
